FAERS Safety Report 7608316-2 (Version None)
Quarter: 2011Q3

REPORT INFORMATION
  Report Type: 
  Country: None (occurrence: None)
  Receive Date: 20110714
  Receipt Date: 20110705
  Transmission Date: 20111222
  Serious: Yes (Hospitalization, Disabling)
  Sender: FDA-Public Use
  Company Number: BR-ASTRAZENECA-2011SE40951

PATIENT
  Age: 62 Year
  Sex: Female
  Weight: 57 kg

DRUGS (4)
  1. OSCAL [Concomitant]
     Indication: OSTEOPENIA
     Route: 048
     Dates: start: 20000101
  2. METOPROLOL SUCCINATE [Suspect]
     Indication: HYPERTENSION
     Route: 048
     Dates: start: 20000101
  3. VYTORIN [Concomitant]
     Indication: HYPERCHOLESTEROLAEMIA
     Dosage: OD
     Route: 048
     Dates: start: 20000101
  4. ATACAND [Suspect]
     Indication: HYPERTENSION
     Route: 048
     Dates: start: 20101001, end: 20110601

REACTIONS (7)
  - ANXIETY [None]
  - BLOOD PRESSURE INADEQUATELY CONTROLLED [None]
  - CEREBROVASCULAR ACCIDENT [None]
  - HEMIPLEGIA [None]
  - DIABETES MELLITUS [None]
  - DRUG INEFFECTIVE [None]
  - OSTEOPENIA [None]
